FAERS Safety Report 6534853-8 (Version None)
Quarter: 2010Q1

REPORT INFORMATION
  Report Type: 
  Country: None (occurrence: None)
  Receive Date: 20100112
  Receipt Date: 20100104
  Transmission Date: 20100710
  Serious: Yes (Death, Other)
  Sender: FDA-Public Use
  Company Number: PHHY2010BR00513

PATIENT
  Sex: Male

DRUGS (9)
  1. EXELON [Suspect]
     Indication: DEMENTIA ALZHEIMER'S TYPE
     Dosage: 1.5 MG, UNK
     Route: 048
     Dates: start: 20070101
  2. EXELON [Suspect]
     Dosage: 1.5 G, BID
     Route: 048
  3. EXELON [Suspect]
     Dosage: 1.5 MG, TID
     Route: 048
  4. DIAZEPAM [Concomitant]
     Indication: SLEEP DISORDER
     Dosage: 1 TABLET AT NIGHT
     Route: 048
  5. HALO [Concomitant]
     Indication: SLEEP DISORDER
     Dosage: 8 DRP, QD BEFORE SLEEP
     Route: 048
  6. LABIRIN [Concomitant]
     Indication: DIZZINESS
     Dosage: UNK
     Route: 048
  7. LABIRIN [Concomitant]
     Indication: LABYRINTHITIS
  8. LONGACTIL [Concomitant]
     Indication: AGITATION
     Dosage: 0.5 DF/DAY
  9. STRAMONIUM [Concomitant]
     Dosage: SOMETIMES
     Route: 048

REACTIONS (5)
  - AGGRESSION [None]
  - AGITATION [None]
  - COMPLETED SUICIDE [None]
  - HALLUCINATION, VISUAL [None]
  - THINKING ABNORMAL [None]
